FAERS Safety Report 23602817 (Version 4)
Quarter: 2024Q4

REPORT INFORMATION
  Report Type: Spontaneous
  Country: US (occurrence: US)
  Receive Date: 20240306
  Receipt Date: 20241122
  Transmission Date: 20250115
  Serious: Yes (Life-Threatening, Hospitalization, Other)
  Sender: MERCK
  Company Number: US-009507513-2403USA000717

PATIENT
  Age: 58 Year
  Sex: Female

DRUGS (20)
  1. KEYTRUDA [Suspect]
     Active Substance: PEMBROLIZUMAB
     Indication: Product used for unknown indication
     Dosage: C1D1, EVERY 3 WEEKS
     Dates: start: 20200819, end: 2020
  2. KEYTRUDA [Suspect]
     Active Substance: PEMBROLIZUMAB
     Indication: Colon cancer recurrent
     Dosage: EVERY 3 WEEKS
     Dates: start: 20201216, end: 202301
  3. KEYTRUDA [Suspect]
     Active Substance: PEMBROLIZUMAB
     Dosage: UNK
     Dates: start: 2023
  4. PREDNISONE [Concomitant]
     Active Substance: PREDNISONE
  5. METHOTREXATE [Concomitant]
     Active Substance: METHOTREXATE
  6. ARIPIPRAZOLE [Concomitant]
     Active Substance: ARIPIPRAZOLE
  7. ASPIRIN [Concomitant]
     Active Substance: ASPIRIN
  8. DULOXETINE [Concomitant]
     Active Substance: DULOXETINE
  9. ELIQUIS [Concomitant]
     Active Substance: APIXABAN
  10. FOLIC ACID [Concomitant]
     Active Substance: FOLIC ACID
  11. FUROSEMIDE [Concomitant]
     Active Substance: FUROSEMIDE
  12. HYDROCODONE [Concomitant]
     Active Substance: HYDROCODONE
  13. ACETAMINOPHEN [Concomitant]
     Active Substance: ACETAMINOPHEN
  14. HYDROXYCHLOROQUINE [Concomitant]
     Active Substance: HYDROXYCHLOROQUINE
  15. KLOR-CON [Concomitant]
     Active Substance: POTASSIUM CHLORIDE
  16. MELATONIN [Concomitant]
     Active Substance: MELATONIN
     Dosage: DISINREGRATING TABLET
  17. METHOTREXATE SODIUM [Concomitant]
     Active Substance: METHOTREXATE SODIUM
  18. OXYBUTYNIN CHLORIDE [Concomitant]
     Active Substance: OXYBUTYNIN CHLORIDE
  19. SULFASALAZINE [Concomitant]
     Active Substance: SULFASALAZINE
  20. TRAZODONE [Concomitant]
     Active Substance: TRAZODONE HYDROCHLORIDE

REACTIONS (40)
  - Pneumonia [Unknown]
  - COVID-19 [Recovering/Resolving]
  - Rheumatoid arthritis [Recovered/Resolved]
  - Immune-mediated enterocolitis [Recovered/Resolved]
  - Deep vein thrombosis [Unknown]
  - Interstitial lung disease [Unknown]
  - Knee arthroplasty [Recovered/Resolved]
  - Hepatomegaly [Recovering/Resolving]
  - Cholelithiasis [Unknown]
  - Splenomegaly [Unknown]
  - Arthritis [Unknown]
  - Osteoarthritis [Unknown]
  - Dyspnoea [Unknown]
  - Cough [Unknown]
  - Cardiac disorder [Unknown]
  - Hypersensitivity [Unknown]
  - Asthma [Unknown]
  - Upper-airway cough syndrome [Unknown]
  - Rhinorrhoea [Unknown]
  - Nasal congestion [Unknown]
  - Weight increased [Unknown]
  - Joint effusion [Unknown]
  - Blood pressure increased [Unknown]
  - Fall [Unknown]
  - Lymphocyte percentage decreased [Unknown]
  - Granulocyte percentage increased [Unknown]
  - Neutrophil count increased [Unknown]
  - Immature granulocyte count increased [Unknown]
  - Blood glucose increased [Unknown]
  - Blood alkaline phosphatase increased [Unknown]
  - Blood creatinine decreased [Unknown]
  - Neutrophil count abnormal [Unknown]
  - Blood urea abnormal [Unknown]
  - Blood creatine abnormal [Unknown]
  - Blood glucose abnormal [Unknown]
  - Blood alkaline phosphatase abnormal [Unknown]
  - Anaemia postoperative [Unknown]
  - Pulse abnormal [Unknown]
  - Pain [Unknown]
  - Swelling [Unknown]

NARRATIVE: CASE EVENT DATE: 20201111
